FAERS Safety Report 16987789 (Version 1)
Quarter: 2019Q4

REPORT INFORMATION
  Report Type: Spontaneous
  Country: US (occurrence: US)
  Receive Date: 20191104
  Receipt Date: 20191104
  Transmission Date: 20200122
  Serious: No
  Sender: FDA-Public Use
  Company Number: US-LUPIN PHARMACEUTICALS INC.-2019-01628

PATIENT
  Sex: Female

DRUGS (2)
  1. LISINOPRIL TABLETS USP, 5MG [Suspect]
     Active Substance: LISINOPRIL
     Indication: PRODUCT USED FOR UNKNOWN INDICATION
     Dosage: 3 DOSAGE FORM
     Route: 048
     Dates: start: 20190309
  2. LISINOPRIL TABLETS USP, 5MG [Suspect]
     Active Substance: LISINOPRIL
     Dosage: 2 DOSAGE FORM
     Route: 048
     Dates: start: 20190310

REACTIONS (1)
  - Dysgeusia [Unknown]
